FAERS Safety Report 25478323 (Version 2)
Quarter: 2025Q3

REPORT INFORMATION
  Report Type: Spontaneous
  Country: CA (occurrence: CA)
  Receive Date: 20250625
  Receipt Date: 20250818
  Transmission Date: 20251021
  Serious: Yes (Life-Threatening, Hospitalization, Disabling, Other)
  Sender: BRISTOL-MYERS SQUIBB COMPANY
  Company Number: CA-BRISTOL-MYERS SQUIBB COMPANY-2025-089423

PATIENT
  Age: 40 Year
  Sex: Female
  Weight: 96 kg

DRUGS (250)
  1. ORENCIA [Suspect]
     Active Substance: ABATACEPT
     Indication: Rheumatoid arthritis
     Route: 058
  2. ORENCIA [Suspect]
     Active Substance: ABATACEPT
     Route: 042
  3. ORENCIA [Suspect]
     Active Substance: ABATACEPT
     Route: 042
  4. ORENCIA [Suspect]
     Active Substance: ABATACEPT
     Route: 058
  5. ORENCIA [Suspect]
     Active Substance: ABATACEPT
  6. ORENCIA [Suspect]
     Active Substance: ABATACEPT
  7. ORENCIA [Suspect]
     Active Substance: ABATACEPT
  8. TRIAMCINOLONE ACETONIDE [Suspect]
     Active Substance: TRIAMCINOLONE ACETONIDE
     Indication: Rheumatoid arthritis
     Route: 014
  9. ORENCIA [Suspect]
     Active Substance: ABATACEPT
     Indication: Rheumatoid arthritis
  10. ACETAMINOPHEN [Concomitant]
     Active Substance: ACETAMINOPHEN
     Indication: Rheumatoid arthritis
  11. ACETAMINOPHEN [Concomitant]
     Active Substance: ACETAMINOPHEN
  12. ACTEMRA [Concomitant]
     Active Substance: TOCILIZUMAB
     Indication: Rheumatoid arthritis
     Route: 042
  13. ACTEMRA [Concomitant]
     Active Substance: TOCILIZUMAB
     Route: 042
  14. ACTEMRA [Concomitant]
     Active Substance: TOCILIZUMAB
     Route: 042
  15. ACTEMRA [Concomitant]
     Active Substance: TOCILIZUMAB
     Route: 042
  16. ACTEMRA [Concomitant]
     Active Substance: TOCILIZUMAB
     Route: 042
  17. ACTEMRA [Concomitant]
     Active Substance: TOCILIZUMAB
     Route: 058
  18. ACTEMRA [Concomitant]
     Active Substance: TOCILIZUMAB
  19. ACTEMRA [Concomitant]
     Active Substance: TOCILIZUMAB
     Route: 042
  20. ACTEMRA [Concomitant]
     Active Substance: TOCILIZUMAB
     Route: 058
  21. ACTEMRA [Concomitant]
     Active Substance: TOCILIZUMAB
     Route: 058
  22. ACTEMRA [Concomitant]
     Active Substance: TOCILIZUMAB
     Route: 058
  23. ACTEMRA [Concomitant]
     Active Substance: TOCILIZUMAB
     Route: 058
  24. ACTEMRA [Concomitant]
     Active Substance: TOCILIZUMAB
  25. ACTEMRA [Concomitant]
     Active Substance: TOCILIZUMAB
     Route: 042
  26. ACTEMRA [Concomitant]
     Active Substance: TOCILIZUMAB
     Route: 058
  27. ACTEMRA [Concomitant]
     Active Substance: TOCILIZUMAB
  28. ACTEMRA [Concomitant]
     Active Substance: TOCILIZUMAB
  29. ACTEMRA [Concomitant]
     Active Substance: TOCILIZUMAB
  30. ACTEMRA [Concomitant]
     Active Substance: TOCILIZUMAB
  31. ACTEMRA [Concomitant]
     Active Substance: TOCILIZUMAB
  32. ADALIMUMAB [Concomitant]
     Active Substance: ADALIMUMAB
     Indication: Product used for unknown indication
     Route: 058
  33. ADALIMUMAB [Concomitant]
     Active Substance: ADALIMUMAB
     Route: 058
  34. ADALIMUMAB [Concomitant]
     Active Substance: ADALIMUMAB
  35. AIMOVIG [Concomitant]
     Active Substance: ERENUMAB-AOOE
     Indication: Migraine
  36. ALENDRONATE SODIUM\CHOLECALCIFEROL [Concomitant]
     Active Substance: ALENDRONATE SODIUM\CHOLECALCIFEROL
     Indication: Rheumatoid arthritis
     Route: 048
  37. LEFLUNOMIDE [Concomitant]
     Active Substance: LEFLUNOMIDE
     Indication: Rheumatoid arthritis
  38. LEFLUNOMIDE [Concomitant]
     Active Substance: LEFLUNOMIDE
     Route: 048
  39. LEFLUNOMIDE [Concomitant]
     Active Substance: LEFLUNOMIDE
  40. LEFLUNOMIDE [Concomitant]
     Active Substance: LEFLUNOMIDE
     Route: 048
  41. LEFLUNOMIDE [Concomitant]
     Active Substance: LEFLUNOMIDE
     Route: 048
  42. LEFLUNOMIDE [Concomitant]
     Active Substance: LEFLUNOMIDE
  43. PREDNISONE [Concomitant]
     Active Substance: PREDNISONE
     Indication: Rheumatoid arthritis
     Route: 048
  44. PREDNISONE [Concomitant]
     Active Substance: PREDNISONE
  45. PREDNISONE [Concomitant]
     Active Substance: PREDNISONE
  46. PREDNISONE [Concomitant]
     Active Substance: PREDNISONE
     Route: 048
  47. PREDNISONE [Concomitant]
     Active Substance: PREDNISONE
  48. PREDNISONE [Concomitant]
     Active Substance: PREDNISONE
  49. PREDNISONE [Concomitant]
     Active Substance: PREDNISONE
     Route: 048
  50. PREDNISONE [Concomitant]
     Active Substance: PREDNISONE
     Route: 048
  51. PREDNISONE [Concomitant]
     Active Substance: PREDNISONE
  52. APREMILAST [Concomitant]
     Active Substance: APREMILAST
     Indication: Rheumatoid arthritis
  53. APREMILAST [Concomitant]
     Active Substance: APREMILAST
  54. APREMILAST [Concomitant]
     Active Substance: APREMILAST
  55. ARAVA [Concomitant]
     Active Substance: LEFLUNOMIDE
     Indication: Rheumatoid arthritis
     Route: 048
  56. ARAVA [Concomitant]
     Active Substance: LEFLUNOMIDE
     Route: 048
  57. ARAVA [Concomitant]
     Active Substance: LEFLUNOMIDE
     Route: 048
  58. ATOMOXETINE HYDROCHLORIDE [Concomitant]
     Active Substance: ATOMOXETINE HYDROCHLORIDE
     Indication: Migraine
  59. BERINERT [Concomitant]
     Active Substance: HUMAN C1-ESTERASE INHIBITOR
     Indication: Product used for unknown indication
  60. BOTULINUM TOXIN TYPE A [Concomitant]
     Active Substance: BOTULINUM TOXIN TYPE A
     Indication: Product used for unknown indication
  61. BOTULINUM TOXIN TYPE A [Concomitant]
     Active Substance: BOTULINUM TOXIN TYPE A
  62. BUTRANS [Concomitant]
     Active Substance: BUPRENORPHINE
     Indication: Product used for unknown indication
  63. CALCIUM ASCORBATE [Concomitant]
     Active Substance: CALCIUM ASCORBATE
     Indication: Product used for unknown indication
  64. CALCIUM GLUBIONATE [Concomitant]
     Active Substance: CALCIUM GLUBIONATE
     Indication: Product used for unknown indication
  65. CANDESARTAN [Concomitant]
     Active Substance: CANDESARTAN
     Indication: Migraine
     Route: 048
  66. CELEBREX [Concomitant]
     Active Substance: CELECOXIB
     Indication: Product used for unknown indication
  67. CELEBREX [Concomitant]
     Active Substance: CELECOXIB
     Route: 048
  68. CETIRIZINE HYDROCHLORIDE [Concomitant]
     Active Substance: CETIRIZINE HYDROCHLORIDE
     Indication: Rheumatoid arthritis
     Route: 048
  69. CETIRIZINE HYDROCHLORIDE [Concomitant]
     Active Substance: CETIRIZINE HYDROCHLORIDE
  70. CETIRIZINE HYDROCHLORIDE [Concomitant]
     Active Substance: CETIRIZINE HYDROCHLORIDE
     Route: 048
  71. CETIRIZINE HYDROCHLORIDE [Concomitant]
     Active Substance: CETIRIZINE HYDROCHLORIDE
  72. CETIRIZINE HYDROCHLORIDE [Concomitant]
     Active Substance: CETIRIZINE HYDROCHLORIDE
  73. CIMZIA [Concomitant]
     Active Substance: CERTOLIZUMAB PEGOL
     Indication: Rheumatoid arthritis
     Route: 058
  74. CIMZIA [Concomitant]
     Active Substance: CERTOLIZUMAB PEGOL
     Indication: Psoriasis
     Route: 058
  75. CIMZIA [Concomitant]
     Active Substance: CERTOLIZUMAB PEGOL
     Route: 058
  76. CORTISONE (HYDROCORTISONE) [Concomitant]
     Active Substance: HYDROCORTISONE
     Indication: Rheumatoid arthritis
  77. CORTISONE ACETATE [Concomitant]
     Active Substance: CORTISONE ACETATE
     Indication: Rheumatoid arthritis
  78. DESOXIMETASONE [Concomitant]
     Active Substance: DESOXIMETASONE
     Indication: Rheumatoid arthritis
     Route: 048
  79. DESOXIMETASONE [Concomitant]
     Active Substance: DESOXIMETASONE
     Route: 058
  80. DESOXIMETASONE [Concomitant]
     Active Substance: DESOXIMETASONE
     Route: 048
  81. DESOXIMETASONE [Concomitant]
     Active Substance: DESOXIMETASONE
  82. DICLOFENAC POTASSIUM [Concomitant]
     Active Substance: DICLOFENAC POTASSIUM
     Indication: Product used for unknown indication
  83. DOMPERIDONE MALEATE [Concomitant]
     Active Substance: DOMPERIDONE MALEATE
     Indication: Product used for unknown indication
  84. ENBREL [Concomitant]
     Active Substance: ETANERCEPT
     Indication: Rheumatoid arthritis
  85. ENBREL [Concomitant]
     Active Substance: ETANERCEPT
  86. ENBREL [Concomitant]
     Active Substance: ETANERCEPT
     Route: 058
  87. ENBREL [Concomitant]
     Active Substance: ETANERCEPT
     Route: 058
  88. ENBREL [Concomitant]
     Active Substance: ETANERCEPT
     Route: 058
  89. ENBREL [Concomitant]
     Active Substance: ETANERCEPT
     Route: 058
  90. ERELZI [Concomitant]
     Active Substance: ETANERCEPT-SZZS
     Indication: Rheumatoid arthritis
  91. ERGOCALCIFEROL [Concomitant]
     Active Substance: ERGOCALCIFEROL
     Indication: Product used for unknown indication
  92. FLUMETHASONE PIVALATE [Concomitant]
     Active Substance: FLUMETHASONE PIVALATE
     Indication: Product used for unknown indication
     Route: 058
  93. FLUMETHASONE PIVALATE [Concomitant]
     Active Substance: FLUMETHASONE PIVALATE
  94. FOLIC ACID [Concomitant]
     Active Substance: FOLIC ACID
     Indication: Rheumatoid arthritis
  95. FOLIC ACID [Concomitant]
     Active Substance: FOLIC ACID
  96. FOLIC ACID [Concomitant]
     Active Substance: FOLIC ACID
     Route: 048
  97. FOLIC ACID [Concomitant]
     Active Substance: FOLIC ACID
     Route: 048
  98. FOLIC ACID [Concomitant]
     Active Substance: FOLIC ACID
     Route: 048
  99. FOLIC ACID [Concomitant]
     Active Substance: FOLIC ACID
     Route: 048
  100. FOSAMAX [Concomitant]
     Active Substance: ALENDRONATE SODIUM
     Indication: Rheumatoid arthritis
  101. FOSAMAX [Concomitant]
     Active Substance: ALENDRONATE SODIUM
     Route: 048
  102. GOLD SODIUM THIOMALATE [Concomitant]
     Active Substance: GOLD SODIUM THIOMALATE
     Indication: Product used for unknown indication
  103. GOLIMUMAB [Concomitant]
     Active Substance: GOLIMUMAB
     Indication: Rheumatoid arthritis
  104. GOLIMUMAB [Concomitant]
     Active Substance: GOLIMUMAB
     Indication: Prostatic specific antigen
     Route: 058
  105. GOLIMUMAB [Concomitant]
     Active Substance: GOLIMUMAB
     Route: 058
  106. HUMIRA [Concomitant]
     Active Substance: ADALIMUMAB
     Indication: Rheumatoid arthritis
  107. HUMIRA [Concomitant]
     Active Substance: ADALIMUMAB
  108. HYDROXYCHLOROQUINE [Concomitant]
     Active Substance: HYDROXYCHLOROQUINE
     Indication: Rheumatoid arthritis
  109. HYDROXYCHLOROQUINE [Concomitant]
     Active Substance: HYDROXYCHLOROQUINE
  110. HYDROXYCHLOROQUINE [Concomitant]
     Active Substance: HYDROXYCHLOROQUINE
  111. HYDROXYCHLOROQUINE [Concomitant]
     Active Substance: HYDROXYCHLOROQUINE
     Route: 048
  112. HYDROXYCHLOROQUINE [Concomitant]
     Active Substance: HYDROXYCHLOROQUINE
     Route: 048
  113. HYDROXYCHLOROQUINE [Concomitant]
     Active Substance: HYDROXYCHLOROQUINE
     Route: 058
  114. HYDROXYCHLOROQUINE [Concomitant]
     Active Substance: HYDROXYCHLOROQUINE
  115. HYDROXYCHLOROQUINE [Concomitant]
     Active Substance: HYDROXYCHLOROQUINE
  116. HYDROXYCHLOROQUINE SULFATE [Concomitant]
     Active Substance: HYDROXYCHLOROQUINE SULFATE
     Indication: Rheumatoid arthritis
  117. INFLIXIMAB [Concomitant]
     Active Substance: INFLIXIMAB
     Indication: Rheumatoid arthritis
     Route: 042
  118. INFLIXIMAB [Concomitant]
     Active Substance: INFLIXIMAB
     Route: 042
  119. INFLIXIMAB [Concomitant]
     Active Substance: INFLIXIMAB
  120. INFLIXIMAB [Concomitant]
     Active Substance: INFLIXIMAB
     Route: 058
  121. INFLIXIMAB [Concomitant]
     Active Substance: INFLIXIMAB
  122. ISOPROPYL ALCOHOL [Concomitant]
     Active Substance: ISOPROPYL ALCOHOL
     Indication: Product used for unknown indication
     Route: 061
  123. LAMICTAL [Concomitant]
     Active Substance: LAMOTRIGINE
     Indication: Product used for unknown indication
     Route: 048
  124. LAMICTAL [Concomitant]
     Active Substance: LAMOTRIGINE
     Route: 048
  125. MAGNESIUM CITRATE [Concomitant]
     Active Substance: MAGNESIUM CITRATE
     Indication: Product used for unknown indication
  126. METFORMIN [Concomitant]
     Active Substance: METFORMIN HYDROCHLORIDE
     Indication: Product used for unknown indication
     Route: 042
  127. METHOTREXATE [Concomitant]
     Active Substance: METHOTREXATE
     Indication: Rheumatoid arthritis
  128. METHOTREXATE [Concomitant]
     Active Substance: METHOTREXATE
  129. METHOTREXATE [Concomitant]
     Active Substance: METHOTREXATE
  130. METHOTREXATE [Concomitant]
     Active Substance: METHOTREXATE
     Route: 048
  131. METHOTREXATE [Concomitant]
     Active Substance: METHOTREXATE
     Route: 048
  132. METHOTREXATE [Concomitant]
     Active Substance: METHOTREXATE
     Route: 048
  133. METHOTREXATE [Concomitant]
     Active Substance: METHOTREXATE
     Route: 058
  134. METHOTREXATE [Concomitant]
     Active Substance: METHOTREXATE
  135. METHOTREXATE [Concomitant]
     Active Substance: METHOTREXATE
     Route: 048
  136. METHOTREXATE [Concomitant]
     Active Substance: METHOTREXATE
  137. METHOTREXATE [Concomitant]
     Active Substance: METHOTREXATE
  138. METHOTREXATE [Concomitant]
     Active Substance: METHOTREXATE
  139. METHOTREXATE [Concomitant]
     Active Substance: METHOTREXATE
  140. METHOTREXATE [Concomitant]
     Active Substance: METHOTREXATE
     Route: 048
  141. METHOTREXATE [Concomitant]
     Active Substance: METHOTREXATE
     Route: 013
  142. METHOTREXATE [Concomitant]
     Active Substance: METHOTREXATE
  143. METHOTREXATE [Concomitant]
     Active Substance: METHOTREXATE
  144. METHYLPREDNISOLONE SODIUM SUCCINATE [Concomitant]
     Active Substance: METHYLPREDNISOLONE SODIUM SUCCINATE
     Indication: Product used for unknown indication
  145. METHYLPREDNISOLONE SODIUM SUCCINATE [Concomitant]
     Active Substance: METHYLPREDNISOLONE SODIUM SUCCINATE
  146. MINOCYCLINE HYDROCHLORIDE [Concomitant]
     Active Substance: MINOCYCLINE HYDROCHLORIDE
     Indication: Rheumatoid arthritis
  147. MYRBETRIQ [Concomitant]
     Active Substance: MIRABEGRON
     Indication: Product used for unknown indication
     Dosage: TABLET (EXTENDED- RELEASE)
  148. MYRBETRIQ [Concomitant]
     Active Substance: MIRABEGRON
  149. NAPROXEN [Concomitant]
     Active Substance: NAPROXEN
     Indication: Product used for unknown indication
  150. NAPROXEN [Concomitant]
     Active Substance: NAPROXEN
  151. NAPROXEN [Concomitant]
     Active Substance: NAPROXEN
  152. NEOMYCIN SULFATE [Concomitant]
     Active Substance: NEOMYCIN SULFATE
     Indication: Rheumatoid arthritis
  153. NUCALA [Concomitant]
     Active Substance: MEPOLIZUMAB
     Indication: Product used for unknown indication
  154. OXYCODONE [Concomitant]
     Active Substance: OXYCODONE
     Indication: Product used for unknown indication
  155. OXYCODONE TEREPHTHALATE [Concomitant]
     Active Substance: OXYCODONE TEREPHTHALATE
     Indication: Product used for unknown indication
  156. PERIOGARD [Concomitant]
     Active Substance: CHLORHEXIDINE GLUCONATE
     Indication: Product used for unknown indication
     Route: 061
  157. PHTHALYLSULFATHIAZOLE [Concomitant]
     Active Substance: PHTHALYLSULFATHIAZOLE
     Indication: Rheumatoid arthritis
     Route: 058
  158. PHTHALYLSULFATHIAZOLE [Concomitant]
     Active Substance: PHTHALYLSULFATHIAZOLE
     Route: 042
  159. PHTHALYLSULFATHIAZOLE [Concomitant]
     Active Substance: PHTHALYLSULFATHIAZOLE
     Route: 048
  160. PHTHALYLSULFATHIAZOLE [Concomitant]
     Active Substance: PHTHALYLSULFATHIAZOLE
     Route: 048
  161. PSEUDOEPHEDRINE HYDROCHLORIDE [Concomitant]
     Active Substance: PSEUDOEPHEDRINE HYDROCHLORIDE
     Indication: Rheumatoid arthritis
  162. PSEUDOEPHEDRINE HYDROCHLORIDE [Concomitant]
     Active Substance: PSEUDOEPHEDRINE HYDROCHLORIDE
  163. PSEUDOEPHEDRINE HYDROCHLORIDE [Concomitant]
     Active Substance: PSEUDOEPHEDRINE HYDROCHLORIDE
  164. RAMIPRIL [Concomitant]
     Active Substance: RAMIPRIL
     Indication: Rheumatoid arthritis
  165. RAMIPRIL [Concomitant]
     Active Substance: RAMIPRIL
     Route: 042
  166. RAMIPRIL [Concomitant]
     Active Substance: RAMIPRIL
     Route: 016
  167. RANITIDINE HYDROCHLORIDE [Concomitant]
     Active Substance: RANITIDINE HYDROCHLORIDE
     Indication: Product used for unknown indication
  168. CETIRIZINE HYDROCHLORIDE [Concomitant]
     Active Substance: CETIRIZINE HYDROCHLORIDE
     Indication: Rheumatoid arthritis
  169. CETIRIZINE HYDROCHLORIDE [Concomitant]
     Active Substance: CETIRIZINE HYDROCHLORIDE
     Route: 048
  170. CETIRIZINE HYDROCHLORIDE [Concomitant]
     Active Substance: CETIRIZINE HYDROCHLORIDE
  171. CETIRIZINE HYDROCHLORIDE [Concomitant]
     Active Substance: CETIRIZINE HYDROCHLORIDE
     Route: 048
  172. CETIRIZINE HYDROCHLORIDE [Concomitant]
     Active Substance: CETIRIZINE HYDROCHLORIDE
  173. CETIRIZINE HYDROCHLORIDE [Concomitant]
     Active Substance: CETIRIZINE HYDROCHLORIDE
  174. CETIRIZINE HYDROCHLORIDE [Concomitant]
     Active Substance: CETIRIZINE HYDROCHLORIDE
     Route: 048
  175. CETIRIZINE HYDROCHLORIDE\PSEUDOEPHEDRINE HYDROCHLORIDE [Concomitant]
     Active Substance: CETIRIZINE HYDROCHLORIDE\PSEUDOEPHEDRINE HYDROCHLORIDE
     Indication: Rheumatoid arthritis
  176. CETIRIZINE HYDROCHLORIDE\PSEUDOEPHEDRINE HYDROCHLORIDE [Concomitant]
     Active Substance: CETIRIZINE HYDROCHLORIDE\PSEUDOEPHEDRINE HYDROCHLORIDE
  177. CETIRIZINE HYDROCHLORIDE\PSEUDOEPHEDRINE HYDROCHLORIDE [Concomitant]
     Active Substance: CETIRIZINE HYDROCHLORIDE\PSEUDOEPHEDRINE HYDROCHLORIDE
  178. REMICADE [Concomitant]
     Active Substance: INFLIXIMAB
     Indication: Rheumatoid arthritis
     Route: 058
  179. REMICADE [Concomitant]
     Active Substance: INFLIXIMAB
     Dosage: POWDER FOR SOLUTION INTRAVENOUS
     Route: 042
  180. REMICADE [Concomitant]
     Active Substance: INFLIXIMAB
     Route: 042
  181. REMICADE [Concomitant]
     Active Substance: INFLIXIMAB
     Route: 042
  182. REMICADE [Concomitant]
     Active Substance: INFLIXIMAB
     Dosage: POWDER FOR SOLUTION FOR INJECTION/INFUSION
     Route: 042
  183. REMICADE [Concomitant]
     Active Substance: INFLIXIMAB
  184. RIBOFLAVIN [Concomitant]
     Active Substance: RIBOFLAVIN
     Indication: Product used for unknown indication
  185. RITUXIMAB [Concomitant]
     Active Substance: RITUXIMAB
     Indication: Rheumatoid arthritis
     Route: 058
  186. RITUXIMAB [Concomitant]
     Active Substance: RITUXIMAB
  187. RITUXIMAB [Concomitant]
     Active Substance: RITUXIMAB
     Route: 042
  188. RITUXIMAB [Concomitant]
     Active Substance: RITUXIMAB
     Route: 042
  189. RITUXIMAB [Concomitant]
     Active Substance: RITUXIMAB
     Route: 042
  190. RITUXIMAB [Concomitant]
     Active Substance: RITUXIMAB
     Route: 043
  191. RITUXIMAB [Concomitant]
     Active Substance: RITUXIMAB
  192. RITUXIMAB [Concomitant]
     Active Substance: RITUXIMAB
     Route: 040
  193. SULFASALAZINE [Concomitant]
     Active Substance: SULFASALAZINE
     Indication: Rheumatoid arthritis
     Route: 048
  194. SULFASALAZINE [Concomitant]
     Active Substance: SULFASALAZINE
     Route: 058
  195. SULFASALAZINE [Concomitant]
     Active Substance: SULFASALAZINE
     Route: 048
  196. SULFASALAZINE [Concomitant]
     Active Substance: SULFASALAZINE
  197. SULFASALAZINE [Concomitant]
     Active Substance: SULFASALAZINE
     Route: 048
  198. SULFASALAZINE [Concomitant]
     Active Substance: SULFASALAZINE
     Route: 048
  199. SULFASALAZINE [Concomitant]
     Active Substance: SULFASALAZINE
     Route: 048
  200. SULFASALAZINE [Concomitant]
     Active Substance: SULFASALAZINE
  201. SULFASALAZINE [Concomitant]
     Active Substance: SULFASALAZINE
  202. SULFASALAZINE [Concomitant]
     Active Substance: SULFASALAZINE
     Route: 058
  203. SULFASALAZINE [Concomitant]
     Active Substance: SULFASALAZINE
  204. SIMPONI [Concomitant]
     Active Substance: GOLIMUMAB
     Indication: Rheumatoid arthritis
  205. SIMPONI [Concomitant]
     Active Substance: GOLIMUMAB
     Route: 058
  206. SIRUKUMAB [Concomitant]
     Active Substance: SIRUKUMAB
     Indication: Product used for unknown indication
  207. GOLD SODIUM THIOMALATE [Concomitant]
     Active Substance: GOLD SODIUM THIOMALATE
     Indication: Product used for unknown indication
     Route: 048
  208. GOLD SODIUM THIOMALATE [Concomitant]
     Active Substance: GOLD SODIUM THIOMALATE
     Route: 030
  209. SULFAMETHOXAZOLE [Concomitant]
     Active Substance: SULFAMETHOXAZOLE
     Indication: Product used for unknown indication
  210. THIAMINE HYDROCHLORIDE [Concomitant]
     Active Substance: THIAMINE HYDROCHLORIDE
     Indication: Product used for unknown indication
  211. TOCILIZUMAB [Concomitant]
     Active Substance: TOCILIZUMAB
     Indication: Rheumatoid arthritis
     Route: 042
  212. TOCILIZUMAB [Concomitant]
     Active Substance: TOCILIZUMAB
     Route: 042
  213. TOCILIZUMAB [Concomitant]
     Active Substance: TOCILIZUMAB
     Route: 058
  214. TOCILIZUMAB [Concomitant]
     Active Substance: TOCILIZUMAB
     Route: 048
  215. TOCILIZUMAB [Concomitant]
     Active Substance: TOCILIZUMAB
  216. TOCILIZUMAB [Concomitant]
     Active Substance: TOCILIZUMAB
     Route: 058
  217. TOCILIZUMAB [Concomitant]
     Active Substance: TOCILIZUMAB
  218. TOCILIZUMAB [Concomitant]
     Active Substance: TOCILIZUMAB
  219. TOPIRAMATE [Concomitant]
     Active Substance: TOPIRAMATE
     Indication: Migraine
  220. TOPIRAMATE [Concomitant]
     Active Substance: TOPIRAMATE
  221. TRAMADOL HYDROCHLORIDE [Concomitant]
     Active Substance: TRAMADOL HYDROCHLORIDE
     Indication: Product used for unknown indication
  222. TUMS [Concomitant]
     Active Substance: CALCIUM CARBONATE
     Indication: Product used for unknown indication
  223. USTEKINUMAB [Concomitant]
     Active Substance: USTEKINUMAB
     Indication: Rheumatoid arthritis
     Route: 058
  224. USTEKINUMAB [Concomitant]
     Active Substance: USTEKINUMAB
  225. VITAMIN A ACETATE [Concomitant]
     Active Substance: VITAMIN A ACETATE
     Indication: Product used for unknown indication
  226. VITAMIN C [Concomitant]
     Active Substance: ASCORBIC ACID
     Indication: Product used for unknown indication
  227. VITAMIN D NOS [Concomitant]
     Active Substance: CHOLECALCIFEROL\ERGOCALCIFEROL
     Indication: Product used for unknown indication
  228. DICLOFENAC DIETHYLAMINE [Concomitant]
     Active Substance: DICLOFENAC DIETHYLAMINE
     Indication: Product used for unknown indication
  229. XELJANZ [Concomitant]
     Active Substance: TOFACITINIB CITRATE
     Indication: Rheumatoid arthritis
     Route: 048
  230. XELJANZ [Concomitant]
     Active Substance: TOFACITINIB CITRATE
     Route: 048
  231. XELJANZ [Concomitant]
     Active Substance: TOFACITINIB CITRATE
     Route: 048
  232. XELJANZ [Concomitant]
     Active Substance: TOFACITINIB CITRATE
  233. XELJANZ [Concomitant]
     Active Substance: TOFACITINIB CITRATE
     Route: 048
  234. COSENTYX [Concomitant]
     Active Substance: SECUKINUMAB
     Indication: Psoriatic arthropathy
  235. DESOGESTREL ETHINYLESTRADIOL BIOGARAN [Concomitant]
     Indication: Product used for unknown indication
  236. CALCIUM CARBONATE [Concomitant]
     Active Substance: CALCIUM CARBONATE
     Indication: Product used for unknown indication
  237. CALCIUM CARBONATE\CHOLECALCIFEROL [Concomitant]
     Active Substance: CALCIUM CARBONATE\CHOLECALCIFEROL
     Indication: Product used for unknown indication
  238. DICLOFENAC SODIUM [Concomitant]
     Active Substance: DICLOFENAC SODIUM
     Indication: Product used for unknown indication
  239. HYDROCORTISONE SODIUM SUCCINATE [Concomitant]
     Active Substance: HYDROCORTISONE SODIUM SUCCINATE
     Indication: Rheumatoid arthritis
     Route: 058
  240. LEFLUNOMIDE [Concomitant]
     Active Substance: LEFLUNOMIDE
     Indication: Rheumatoid arthritis
     Route: 048
  241. LEFLUNOMIDE [Concomitant]
     Active Substance: LEFLUNOMIDE
     Route: 048
  242. LEFLUNOMIDE [Concomitant]
     Active Substance: LEFLUNOMIDE
     Route: 048
  243. CLIOQUINOL\FLUMETHASONE [Concomitant]
     Active Substance: CLIOQUINOL\FLUMETHASONE
     Indication: Product used for unknown indication
  244. DIATRIZOATE MEGLUMINE [Concomitant]
     Active Substance: DIATRIZOATE MEGLUMINE
     Indication: Product used for unknown indication
     Route: 042
  245. MYOCHRYSINE [Concomitant]
     Active Substance: GOLD SODIUM THIOMALATE
     Indication: Rheumatoid arthritis
     Route: 030
  246. PHENYLEPHRINE HYDROCHLORIDE [Concomitant]
     Active Substance: PHENYLEPHRINE HYDROCHLORIDE
     Indication: Rheumatoid arthritis
  247. POVIDONE-IODINE [Concomitant]
     Active Substance: POVIDONE-IODINE
     Indication: Product used for unknown indication
  248. STELARA [Concomitant]
     Active Substance: USTEKINUMAB
     Indication: Rheumatoid arthritis
     Route: 058
  249. STELARA [Concomitant]
     Active Substance: USTEKINUMAB
  250. YEAST [Concomitant]
     Active Substance: YEAST
     Indication: Rheumatoid arthritis

REACTIONS (34)
  - C-reactive protein abnormal [Unknown]
  - C-reactive protein increased [Unknown]
  - Confusional state [Unknown]
  - Drug hypersensitivity [Unknown]
  - Drug ineffective [Unknown]
  - Dyspnoea [Unknown]
  - Ill-defined disorder [Unknown]
  - Infusion related reaction [Unknown]
  - Injection site reaction [Unknown]
  - Nausea [Unknown]
  - Onychomadesis [Unknown]
  - Onychomycosis [Unknown]
  - Overdose [Unknown]
  - Pain [Unknown]
  - Pemphigus [Unknown]
  - Pericarditis [Unknown]
  - Product use issue [Unknown]
  - Psoriatic arthropathy [Unknown]
  - Rash [Unknown]
  - Rheumatic fever [Unknown]
  - Rheumatoid arthritis [Unknown]
  - Sleep disorder [Unknown]
  - Swelling [Unknown]
  - Synovitis [Unknown]
  - Systemic lupus erythematosus [Unknown]
  - Therapeutic product effect decreased [Unknown]
  - Therapeutic product effect incomplete [Unknown]
  - Treatment failure [Unknown]
  - Type 2 diabetes mellitus [Unknown]
  - Wound [Unknown]
  - Adverse event [Unknown]
  - Hospitalisation [Unknown]
  - Underdose [Unknown]
  - Off label use [Unknown]
